FAERS Safety Report 16034777 (Version 1)
Quarter: 2019Q1

REPORT INFORMATION
  Report Type: Spontaneous
  Country: US (occurrence: US)
  Receive Date: 20190206
  Receipt Date: 20190206
  Transmission Date: 20190418
  Serious: Yes (Life-Threatening, Hospitalization, Disabling)
  Sender: FDA-Public Use
  Company Number: None

PATIENT
  Age: 54 Year
  Sex: Female
  Weight: 92.08 kg

DRUGS (7)
  1. GLUCOSAMINE/CHONDROITON [Concomitant]
  2. DAILY VTAMIN [Concomitant]
  3. PIOGLIATIZON HCL [Concomitant]
  4. IRON [Concomitant]
     Active Substance: IRON
  5. VICTOZA [Concomitant]
     Active Substance: LIRAGLUTIDE
  6. LOSARTAN POTASSIUM 50MG TAB [Suspect]
     Active Substance: LOSARTAN POTASSIUM
     Indication: HYPERTENSION
     Dosage: ?          QUANTITY:50 MG MILLIGRAM(S);?
     Route: 048
     Dates: start: 20180102
  7. LOSARTAN 100MG [Suspect]
     Active Substance: LOSARTAN
     Indication: HYPERTENSION
     Dosage: ?          QUANTITY:100 MG MILLIGRAM(S);?
     Route: 048
     Dates: start: 20180102

REACTIONS (1)
  - Ovarian cancer [None]

NARRATIVE: CASE EVENT DATE: 20181115
